FAERS Safety Report 6111225-1 (Version None)
Quarter: 2009Q1

REPORT INFORMATION
  Report Type: 
  Country: None (occurrence: None)
  Receive Date: 20090309
  Receipt Date: 20090219
  Transmission Date: 20090719
  Serious: Yes (Other)
  Sender: FDA-Public Use
  Company Number: 8043644

PATIENT
  Sex: Female

DRUGS (2)
  1. PREDNISOLONE TAB [Suspect]
  2. CYCLOSPORINE [Suspect]

REACTIONS (2)
  - IMPETIGO HERPETIFORMIS [None]
  - RASH PUSTULAR [None]
